FAERS Safety Report 7514568-X (Version None)
Quarter: 2011Q2

REPORT INFORMATION
  Report Type: 
  Country: None (occurrence: None)
  Receive Date: 20110601
  Receipt Date: 20110412
  Transmission Date: 20111010
  Serious: Yes (Other)
  Sender: FDA-Public Use
  Company Number: US-BAYER-201037893NA

PATIENT
  Sex: Female
  Weight: 76.19 kg

DRUGS (11)
  1. YAZ [Suspect]
     Indication: ACNE
  2. VITAMIN B12 [Concomitant]
     Dosage: 500 MG, UNK
  3. ALLEGRA-D 12 HOUR [Concomitant]
  4. MUCINEX [Concomitant]
  5. DROSPIRENONE AND ETHINYL ESTRADIOL [Suspect]
     Indication: ACNE
  6. OMEPRAZOLE [Concomitant]
     Dosage: 20 MG, UNK
  7. HYDROCHLOROTHIAZIDE [Concomitant]
     Dosage: 12.5 MG, UNK
  8. PREVACID [Concomitant]
     Dosage: 30 MG, UNK
  9. YASMIN [Suspect]
     Indication: ACNE
  10. FOLIC ACID [Concomitant]
     Dosage: 1 MG, UNK
  11. PRAVASTATIN [Concomitant]
     Dosage: 40 MG, UNK

REACTIONS (2)
  - CHOLECYSTECTOMY [None]
  - CHOLECYSTITIS CHRONIC [None]
